FAERS Safety Report 6249927-9 (Version None)
Quarter: 2009Q2

REPORT INFORMATION
  Report Type: 
  Country: None (occurrence: None)
  Receive Date: 20090625
  Receipt Date: 20090617
  Transmission Date: 20091009
  Serious: Yes (Life-Threatening)
  Sender: FDA-Public Use
  Company Number: 2009SP013442

PATIENT
  Age: 6 Year
  Sex: Male
  Weight: 25 kg

DRUGS (6)
  1. AERIUS KIDS (DESLORATADINE) (DESLORATADINE) [Suspect]
     Indication: RHINITIS ALLERGIC
     Dosage: 5 ML; QD; PO
     Route: 048
     Dates: start: 20090218, end: 20090227
  2. ALBUTEROL [Concomitant]
  3. CEFUROXIME [Concomitant]
  4. ACETYLCYSTEINE [Concomitant]
  5. DICLOFENAC SODIUM [Concomitant]
  6. ALBUTEROL [Concomitant]

REACTIONS (5)
  - ENCEPHALITIS VIRAL [None]
  - GRAND MAL CONVULSION [None]
  - MENTAL IMPAIRMENT [None]
  - PNEUMONIA [None]
  - STATUS EPILEPTICUS [None]
